FAERS Safety Report 5223687-2 (Version None)
Quarter: 2007Q1

REPORT INFORMATION
  Report Type: 
  Country: None (occurrence: None)
  Receive Date: 20070130
  Receipt Date: 20070119
  Transmission Date: 20070707
  Serious: Yes (Hospitalization)
  Sender: FDA-Public Use
  Company Number: TR-JNJFOC-20070104810

PATIENT
  Age: 44 Year
  Sex: Male

DRUGS (2)
  1. RISPERDAL [Suspect]
     Indication: NEUROSYPHILIS
  2. MEMANTINE HCL [Concomitant]

REACTIONS (6)
  - AKATHISIA [None]
  - APATHY [None]
  - DRUG INEFFECTIVE FOR UNAPPROVED INDICATION [None]
  - HYPOKINESIA [None]
  - MUSCLE RIGIDITY [None]
  - PSYCHOMOTOR RETARDATION [None]
